FAERS Safety Report 9193608 (Version 2)
Quarter: 2013Q4

REPORT INFORMATION
  Report Type: Spontaneous
  Country: BR (occurrence: BR)
  Receive Date: 20130327
  Receipt Date: 20131126
  Transmission Date: 20140711
  Serious: No
  Sender: FDA-Public Use
  Company Number: BR-JNJFOC-20130314779

PATIENT
  Age: 79 Year
  Sex: Male

DRUGS (9)
  1. DUROGESIC D-TRANS [Suspect]
     Indication: PAIN IN EXTREMITY
     Route: 062
     Dates: start: 201301
  2. ULTRACET [Suspect]
     Indication: PAIN IN EXTREMITY
     Route: 048
     Dates: start: 201209
  3. LYRICA [Concomitant]
     Route: 065
  4. GLIFAGE [Concomitant]
     Indication: DIABETES MELLITUS
     Route: 065
  5. INSULIN [Concomitant]
     Indication: DIABETES MELLITUS
     Route: 065
  6. DEFLAZACORT [Concomitant]
     Indication: ARTHRITIS
     Route: 065
  7. SYNTHROID [Concomitant]
     Indication: HYPOTHYROIDISM
     Route: 065
  8. MICARDIS [Concomitant]
     Indication: HYPERTENSION
     Route: 065
  9. THIOCTACID HR [Concomitant]
     Indication: DIABETIC NEUROPATHY
     Route: 065

REACTIONS (3)
  - Pain [Not Recovered/Not Resolved]
  - Product quality issue [Not Recovered/Not Resolved]
  - Wrong technique in drug usage process [Not Recovered/Not Resolved]
